FAERS Safety Report 8904643 (Version 1)
Quarter: 2012Q4

REPORT INFORMATION
  Report Type: 
  Country: US (occurrence: US)
  Receive Date: 20121113
  Receipt Date: 20121113
  Transmission Date: 20130627
  Serious: No
  Sender: FDA-Public Use
  Company Number: US-GLAXOSMITHKLINE-A0945177A

PATIENT
  Sex: Male

DRUGS (2)
  1. COREG [Suspect]
     Indication: PRODUCT USED FOR UNKNOWN INDICATION
     Dosage: 25MG Twice per day
     Dates: start: 201102
  2. COREG CR [Suspect]
     Indication: PRODUCT USED FOR UNKNOWN INDICATION
     Dosage: 40MG At night
     Dates: start: 201102

REACTIONS (3)
  - Blood pressure inadequately controlled [Recovered/Resolved]
  - Hypertension [Recovered/Resolved]
  - Blood pressure decreased [Unknown]
